FAERS Safety Report 6094036-5 (Version None)
Quarter: 2009Q1

REPORT INFORMATION
  Report Type: 
  Country: None (occurrence: None)
  Receive Date: 20090224
  Receipt Date: 20090224
  Transmission Date: 20090719
  Serious: No
  Sender: FDA-Public Use
  Company Number: None

PATIENT
  Sex: Female
  Weight: 87.27 kg

DRUGS (2)
  1. TRAMADOL HCL [Suspect]
     Dosage: 50 MG TABLET 50 MG Q6H ORAL
     Route: 048
     Dates: start: 20080926, end: 20090223
  2. MVI (MULTIVITAMINS) [Concomitant]

REACTIONS (2)
  - DIZZINESS [None]
  - NAUSEA [None]
